FAERS Safety Report 18545661 (Version 1)
Quarter: 2020Q4

REPORT INFORMATION
  Report Type: Spontaneous
  Country: US (occurrence: US)
  Receive Date: 20201125
  Receipt Date: 20201125
  Transmission Date: 20210114
  Serious: Yes (Death)
  Sender: FDA-Public Use
  Company Number: None

PATIENT
  Age: 78 Year
  Sex: Male
  Weight: 94.5 kg

DRUGS (8)
  1. DIPHENHYDRAMINE. [Concomitant]
     Active Substance: DIPHENHYDRAMINE
  2. LEUKERAN [Suspect]
     Active Substance: CHLORAMBUCIL
     Indication: CHRONIC LYMPHOCYTIC LEUKAEMIA
     Dosage: ?          OTHER FREQUENCY:DAYS 1 AND DAYS 15;?
     Route: 048
     Dates: start: 20200228, end: 20201121
  3. DEXAMETHASONE. [Concomitant]
     Active Substance: DEXAMETHASONE
  4. ACETAMINOPHEN ER [Concomitant]
     Active Substance: ACETAMINOPHEN
  5. LASIX [Concomitant]
     Active Substance: FUROSEMIDE
  6. ALLOPURINOL. [Concomitant]
     Active Substance: ALLOPURINOL
  7. NORVASC [Concomitant]
     Active Substance: AMLODIPINE BESYLATE
  8. GAZYVA [Concomitant]
     Active Substance: OBINUTUZUMAB

REACTIONS (1)
  - Death [None]

NARRATIVE: CASE EVENT DATE: 20201121
